FAERS Safety Report 5122645-6 (Version None)
Quarter: 2006Q4

REPORT INFORMATION
  Report Type: 
  Country: None (occurrence: None)
  Receive Date: 20061004
  Receipt Date: 20060922
  Transmission Date: 20070319
  Serious: Yes (Other)
  Sender: FDA-Public Use
  Company Number: 2006-02473

PATIENT
  Age: 78 Year
  Sex: Male

DRUGS (1)
  1. VELCADE [Suspect]
     Indication: MULTIPLE MYELOMA
     Dosage: 1.30 MG/M2

REACTIONS (9)
  - ASTHENIA [None]
  - CONSTIPATION [None]
  - DRUG TOXICITY [None]
  - DRY EYE [None]
  - FACE OEDEMA [None]
  - HAEMATURIA [None]
  - HERPES ZOSTER [None]
  - THROMBOCYTOPENIA [None]
  - VISION BLURRED [None]
